FAERS Safety Report 8886552 (Version 1)
Quarter: 2012Q4

REPORT INFORMATION
  Report Type: 
  Country: NL (occurrence: NL)
  Receive Date: 20121105
  Receipt Date: 20121105
  Transmission Date: 20130627
  Serious: Yes (Death)
  Sender: FDA-Public Use
  Company Number: PHHY2012NL099933

PATIENT
  Age: 75 Year
  Sex: Male

DRUGS (13)
  1. EXJADE [Suspect]
     Dosage: 2 DF, QD
     Route: 048
     Dates: start: 20120502
  2. METOPROLOL [Concomitant]
  3. FUROSEMIDE [Concomitant]
  4. LANOXIN [Concomitant]
  5. INSULIN [Concomitant]
  6. METFORMIN [Concomitant]
  7. SIMVASTATIN [Concomitant]
  8. MIRTAZAPINE [Concomitant]
  9. VALACICLOVIR [Concomitant]
  10. AMOXICILINA/ CLAVULONICO [Concomitant]
  11. VENT BEC [Concomitant]
  12. FENTANYL [Concomitant]
  13. ANTIARRHYTHMATICS [Concomitant]

REACTIONS (1)
  - Death [Fatal]
